FAERS Safety Report 12210703 (Version 1)
Quarter: 2016Q1

REPORT INFORMATION
  Report Type: Spontaneous
  Country: CA (occurrence: CA)
  Receive Date: 20160325
  Receipt Date: 20160325
  Transmission Date: 20160526
  Serious: Yes (Other)
  Sender: FDA-Public Use
  Company Number: CA-AMGEN-CANSP2016036649

PATIENT
  Sex: Male
  Weight: 63 kg

DRUGS (6)
  1. VENOFER [Concomitant]
     Active Substance: IRON SUCROSE
     Dosage: UNK
     Route: 042
  2. SIMVASTATIN. [Concomitant]
     Active Substance: SIMVASTATIN
     Dosage: UNK
  3. ROCALTROL [Concomitant]
     Active Substance: CALCITRIOL
     Dosage: UNK
  4. SYNTHROID [Concomitant]
     Active Substance: LEVOTHYROXINE SODIUM
     Dosage: UNK
  5. PREDNISONE. [Concomitant]
     Active Substance: PREDNISONE
     Dosage: UNK
  6. PROLIA [Suspect]
     Active Substance: DENOSUMAB
     Indication: OSTEOPOROSIS
     Dosage: 60 MG, UNK
     Route: 058

REACTIONS (1)
  - Osteonecrosis of jaw [Recovered/Resolved]
